FAERS Safety Report 23197377 (Version 1)
Quarter: 2023Q4

REPORT INFORMATION
  Report Type: Report from Study
  Country: IL (occurrence: IL)
  Receive Date: 20231117
  Receipt Date: 20231117
  Transmission Date: 20240110
  Serious: Yes (Other)
  Sender: FDA-Public Use
  Company Number: IL-SUN PHARMACEUTICAL INDUSTRIES LTD-2023R1-417977

PATIENT
  Age: 35 Year
  Sex: Male

DRUGS (4)
  1. CISPLATIN [Suspect]
     Active Substance: CISPLATIN
     Indication: Oropharyngeal squamous cell carcinoma
     Dosage: 2 CYCLES
     Route: 065
     Dates: start: 2012
  2. DOCETAXEL [Suspect]
     Active Substance: DOCETAXEL\DOCETAXEL ANHYDROUS
     Indication: Oropharyngeal squamous cell carcinoma
     Dosage: 2 CYCLES
     Route: 065
     Dates: start: 2012
  3. FLUOROURACIL [Suspect]
     Active Substance: FLUOROURACIL
     Indication: Oropharyngeal squamous cell carcinoma
     Dosage: 2 CYCLES
     Route: 065
     Dates: start: 2012
  4. CETUXIMAB [Concomitant]
     Active Substance: CETUXIMAB
     Indication: Oropharyngeal squamous cell carcinoma
     Dosage: UNK
     Route: 065
     Dates: start: 2012

REACTIONS (3)
  - Mucosal inflammation [Unknown]
  - Dysphagia [Unknown]
  - Dry mouth [Unknown]
